FAERS Safety Report 8126436-3 (Version None)
Quarter: 2012Q1

REPORT INFORMATION
  Report Type: 
  Country: None (occurrence: None)
  Receive Date: 20120209
  Receipt Date: 20120202
  Transmission Date: 20120608
  Serious: No
  Sender: FDA-Public Use
  Company Number: US-PFIZER INC-2012029704

PATIENT
  Sex: Male

DRUGS (1)
  1. LYRICA [Suspect]
     Dosage: 75 MG, 2X/DAY
     Route: 048
     Dates: start: 20120101

REACTIONS (5)
  - MUSCULOSKELETAL PAIN [None]
  - FEELING ABNORMAL [None]
  - ABNORMAL SENSATION IN EYE [None]
  - NECK PAIN [None]
  - DRUG EFFECT DECREASED [None]
